FAERS Safety Report 26049518 (Version 1)
Quarter: 2025Q4

REPORT INFORMATION
  Report Type: Spontaneous
  Country: CN (occurrence: CN)
  Receive Date: 20251115
  Receipt Date: 20251115
  Transmission Date: 20260118
  Serious: Yes (Other)
  Sender: ABBVIE
  Company Number: CN-ABBVIE-6545974

PATIENT

DRUGS (3)
  1. BOTOX [Suspect]
     Active Substance: ONABOTULINUMTOXINA
     Indication: Skin wrinkling
     Dosage: TIME INTERVAL: AS NECESSARY: 60 UNIT, STRENGTH: 100 UNIT, FREQUENCY ONCE
     Route: 065
     Dates: start: 20251013, end: 20251013
  2. BOTOX [Suspect]
     Active Substance: ONABOTULINUMTOXINA
     Indication: Skin wrinkling
     Dosage: TIME INTERVAL: AS NECESSARY: 60 UNIT, STRENGTH: 100 UNIT, FREQUENCY ONCE
     Route: 065
     Dates: start: 20251013, end: 20251013
  3. BOTOX [Suspect]
     Active Substance: ONABOTULINUMTOXINA
     Indication: Skin wrinkling
     Dosage: TIME INTERVAL: AS NECESSARY: 60 UNIT, STRENGTH: 100 UNIT, FREQUENCY ONCE
     Route: 065
     Dates: start: 20251013, end: 20251013

REACTIONS (8)
  - Toxicity to various agents [Unknown]
  - Blood potassium decreased [Not Recovered/Not Resolved]
  - Nasopharyngitis [Not Recovered/Not Resolved]
  - Chills [Not Recovered/Not Resolved]
  - Muscular weakness [Not Recovered/Not Resolved]
  - Oropharyngeal discomfort [Not Recovered/Not Resolved]
  - Dyspnoea [Not Recovered/Not Resolved]
  - Respiratory alkalosis [Not Recovered/Not Resolved]

NARRATIVE: CASE EVENT DATE: 20251015
